FAERS Safety Report 19231056 (Version 1)
Quarter: 2021Q2

REPORT INFORMATION
  Report Type: Spontaneous
  Country: PT (occurrence: PT)
  Receive Date: 20210507
  Receipt Date: 20210507
  Transmission Date: 20210717
  Serious: Yes (Other)
  Sender: FDA-Public Use
  Company Number: PHHY2014PT042342

PATIENT
  Age: 50 Year
  Sex: Male

DRUGS (2)
  1. IMATINIB. [Suspect]
     Active Substance: IMATINIB MESYLATE
     Indication: MORPHOEA
     Dosage: 300 MG, PER DAY
     Route: 065
  2. IMATINIB. [Suspect]
     Active Substance: IMATINIB MESYLATE
     Indication: OFF LABEL USE
     Dosage: 200 MG, QD
     Route: 065

REACTIONS (2)
  - Periorbital oedema [Unknown]
  - Off label use [Unknown]
